FAERS Safety Report 25537667 (Version 1)
Quarter: 2025Q3

REPORT INFORMATION
  Report Type: Spontaneous
  Country: US (occurrence: US)
  Receive Date: 20250710
  Receipt Date: 20250710
  Transmission Date: 20251021
  Serious: Yes (Other)
  Sender: TEVA
  Company Number: US-TEVA-VS-3348186

PATIENT

DRUGS (1)
  1. AJOVY [Suspect]
     Active Substance: FREMANEZUMAB-VFRM
     Indication: Product used for unknown indication
     Route: 065

REACTIONS (5)
  - Injection site cellulitis [Unknown]
  - Injection site mass [Unknown]
  - Injection site rash [Unknown]
  - Injection site erythema [Unknown]
  - Injection site warmth [Unknown]
